FAERS Safety Report 17478942 (Version 2)
Quarter: 2020Q1

REPORT INFORMATION
  Report Type: Spontaneous
  Country: DE (occurrence: DE)
  Receive Date: 20200228
  Receipt Date: 20200327
  Transmission Date: 20200409
  Serious: Yes (Hospitalization)
  Sender: FDA-Public Use
  Company Number: DE-NOVOPROD-714940

PATIENT
  Sex: Female

DRUGS (2)
  1. NOVORAPID [Suspect]
     Active Substance: INSULIN ASPART
     Indication: TYPE 1 DIABETES MELLITUS
     Dosage: 55 IU-65 IU PER DAY
     Route: 058
  2. NOVORAPID [Suspect]
     Active Substance: INSULIN ASPART
     Dosage: 55 IU-65 IU PER DAY NEW CARTRIDGE
     Route: 058
     Dates: start: 20200218

REACTIONS (4)
  - Diabetic ketoacidosis [Unknown]
  - Product physical issue [Unknown]
  - Blood glucose decreased [Unknown]
  - Product leakage [Unknown]
